FAERS Safety Report 5409037-7 (Version None)
Quarter: 2007Q3

REPORT INFORMATION
  Report Type: 
  Country: None (occurrence: None)
  Receive Date: 20070806
  Receipt Date: 20070726
  Transmission Date: 20080115
  Serious: Yes (Hospitalization)
  Sender: FDA-Public Use
  Company Number: FABR-11757

PATIENT
  Age: 50 Year
  Sex: Female
  Weight: 107 kg

DRUGS (7)
  1. FABRAZYME [Suspect]
     Indication: FABRY'S DISEASE
     Dosage: 105 MG Q2WKS IV
     Route: 042
     Dates: start: 20031023, end: 20061108
  2. FABRAZYME [Suspect]
     Indication: FABRY'S DISEASE
     Dates: start: 20060101
  3. DARVOCET-N. MFR: LILLY ELI AND COMPANY [Suspect]
     Indication: PAIN
     Dates: start: 20061101
  4. AUGMENTIN [Suspect]
     Indication: BRONCHITIS
     Dates: start: 20061101
  5. IBUPROFEN [Concomitant]
  6. ALLEGRA D 24 HOUR [Concomitant]
  7. GABAPENTIN [Concomitant]

REACTIONS (4)
  - BRONCHITIS [None]
  - DEHYDRATION [None]
  - HEPATIC FAILURE [None]
  - WEIGHT DECREASED [None]
